FAERS Safety Report 6196004-1 (Version None)
Quarter: 2009Q2

REPORT INFORMATION
  Report Type: 
  Country: None (occurrence: None)
  Receive Date: 20090520
  Receipt Date: 20050527
  Transmission Date: 20091009
  Serious: Yes (Hospitalization)
  Sender: FDA-Public Use
  Company Number: NL-ROCHE-415511

PATIENT
  Sex: Female

DRUGS (6)
  1. CAPECITABINE [Suspect]
     Indication: COLORECTAL CANCER
     Dosage: GIVEN FROM DAYS ONE TO FOURTEEN OF A THREE WEEK CYCLE.
     Route: 048
     Dates: start: 20040714, end: 20040804
  2. CAPECITABINE [Suspect]
     Dosage: GIVEN FROM DAYS ONE TO FOURTEEN OF A THREE WEEK CYCLE.
     Route: 048
     Dates: start: 20031022
  3. IRINOTECAN HCL [Suspect]
     Indication: COLORECTAL CANCER
     Route: 042
     Dates: start: 20031022
  4. OXALIPLATIN [Suspect]
     Indication: COLORECTAL CANCER
     Route: 042
     Dates: start: 20040714, end: 20040804
  5. NORDETTE-28 [Concomitant]
     Route: 048
  6. DURAGESIC-100 [Concomitant]
     Route: 048

REACTIONS (3)
  - LARYNGOSPASM [None]
  - NAUSEA [None]
  - VOMITING [None]
